FAERS Safety Report 20955353 (Version 1)
Quarter: 2022Q2

REPORT INFORMATION
  Report Type: Spontaneous
  Country: US (occurrence: None)
  Receive Date: 20220613
  Receipt Date: 20220613
  Transmission Date: 20220721
  Serious: Yes (Other)
  Sender: FDA-Public Use
  Company Number: None

PATIENT
  Age: 79 Year
  Sex: Male

DRUGS (6)
  1. GEMTESA [Suspect]
     Active Substance: VIBEGRON
     Indication: Hypertonic bladder
     Dosage: 75 MG DAILY ORAL?
     Route: 048
     Dates: start: 20220509, end: 20220609
  2. TADALAFIL [Concomitant]
     Active Substance: TADALAFIL
  3. Valsartan Tab 80 MG [Concomitant]
  4. Eliquis Tab 2.5MG [Concomitant]
  5. Frovatriptan Succ Tab 2.5 MG (Base Equivalent) [Concomitant]
  6. Bimatoprost ophth soln 0.01% [Concomitant]

REACTIONS (2)
  - Urinary tract infection [None]
  - Blood urine present [None]

NARRATIVE: CASE EVENT DATE: 20220610
